FAERS Safety Report 16729613 (Version 1)
Quarter: 2019Q3

REPORT INFORMATION
  Report Type: Spontaneous
  Country: US (occurrence: US)
  Receive Date: 20190822
  Receipt Date: 20190822
  Transmission Date: 20191005
  Serious: Yes (Hospitalization, Other)
  Sender: FDA-Public Use
  Company Number: US-MYLANLABS-2019M1077900

PATIENT
  Age: 58 Year
  Sex: Male

DRUGS (2)
  1. DEXTROSE. [Concomitant]
     Active Substance: DEXTROSE
     Indication: VEHICLE SOLUTION USE
     Dosage: USED FOR RECONSTITUTION AND INFUSED FOR TWO HOURS
     Route: 041
  2. MYCOPHENOLATE MOFETIL. [Suspect]
     Active Substance: MYCOPHENOLATE MOFETIL
     Indication: PROPHYLAXIS AGAINST TRANSPLANT REJECTION
     Dosage: RECONSTITUTED IN 250ML OF 5% GLUCOSE AND INFUSED FOR TWO HOURS
     Route: 041

REACTIONS (2)
  - Infusion site necrosis [Unknown]
  - Infusion site extravasation [Unknown]
